FAERS Safety Report 6716185-8 (Version None)
Quarter: 2010Q2

REPORT INFORMATION
  Report Type: 
  Country: None (occurrence: None)
  Receive Date: 20100507
  Receipt Date: 20100430
  Transmission Date: 20101027
  Serious: Yes (Hospitalization, Other)
  Sender: FDA-Public Use
  Company Number: FI-AMGEN-QUU407237

PATIENT
  Sex: Female
  Weight: 90 kg

DRUGS (7)
  1. NPLATE [Suspect]
     Indication: IDIOPATHIC THROMBOCYTOPENIC PURPURA
     Dates: start: 20100305
  2. PREDNISOLONE [Concomitant]
     Route: 048
  3. PARATABS [Concomitant]
     Route: 048
  4. LYRICA [Concomitant]
     Route: 048
  5. PNEUMOCOCCAL VACCINE [Concomitant]
  6. INFLUENZA VACCINE [Concomitant]
  7. VACCINES [Concomitant]

REACTIONS (3)
  - PLATELET COUNT DECREASED [None]
  - SPLENECTOMY [None]
  - THERAPEUTIC RESPONSE DECREASED [None]
